FAERS Safety Report 20168673 (Version 1)
Quarter: 2021Q4

REPORT INFORMATION
  Report Type: Spontaneous
  Country: CA (occurrence: CA)
  Receive Date: 20211210
  Receipt Date: 20211210
  Transmission Date: 20220304
  Serious: Yes (Other)
  Sender: FDA-Public Use
  Company Number: CA-NEBO-PC007731

PATIENT
  Age: 34 Year
  Sex: Female
  Weight: 66 kg

DRUGS (3)
  1. MONOFERRIC [Suspect]
     Active Substance: FERRIC DERISOMALTOSE
     Indication: Anaemia
     Route: 042
  2. METOCLOPRAMIDE [Concomitant]
     Active Substance: METOCLOPRAMIDE
  3. OMEPRAZOLE [Concomitant]
     Active Substance: OMEPRAZOLE

REACTIONS (9)
  - Neurogenic shock [Unknown]
  - Chest discomfort [Unknown]
  - Dyspnoea [Unknown]
  - Hot flush [Unknown]
  - Hypotension [Unknown]
  - Nausea [Unknown]
  - Blood pressure decreased [Unknown]
  - Panic reaction [Unknown]
  - Maternal exposure during pregnancy [Unknown]
